FAERS Safety Report 6338247-X (Version None)
Quarter: 2009Q3

REPORT INFORMATION
  Report Type: 
  Country: None (occurrence: None)
  Receive Date: 20090902
  Receipt Date: 20090902
  Transmission Date: 20100115
  Serious: Yes (Other)
  Sender: FDA-Public Use
  Company Number: US-PFIZER INC-2009240025

PATIENT
  Age: 78 Year
  Sex: Male
  Weight: 65.76 kg

DRUGS (12)
  1. LYRICA [Suspect]
     Indication: NEURALGIA
     Dosage: 50 MG, 1X/DAY
  2. ERYTHROMYCIN [Suspect]
     Indication: PARKINSON'S DISEASE
     Route: 047
  3. ERYTHROMYCIN [Suspect]
     Indication: ROSACEA
  4. DOXYCYCLINE [Suspect]
     Indication: PARKINSON'S DISEASE
     Route: 047
  5. DOXYCYCLINE [Suspect]
     Indication: ROSACEA
  6. TETRACYCLINE [Suspect]
     Indication: PARKINSON'S DISEASE
     Route: 047
  7. TETRACYCLINE [Suspect]
     Indication: ROSACEA
  8. ACETYLSALICYLIC ACID [Concomitant]
  9. SOMA [Concomitant]
  10. LISINOPRIL [Concomitant]
  11. METOPROLOL [Concomitant]
  12. TRAMADOL [Concomitant]

REACTIONS (7)
  - DRY EYE [None]
  - EYE DISORDER [None]
  - EYE IRRITATION [None]
  - GASTROINTESTINAL DISORDER [None]
  - NEURALGIA [None]
  - OCULAR HYPERAEMIA [None]
  - VISION BLURRED [None]
